FAERS Safety Report 8544475-5 (Version None)
Quarter: 2012Q3

REPORT INFORMATION
  Report Type: 
  Country: None (occurrence: None)
  Receive Date: 20120727
  Receipt Date: 20120723
  Transmission Date: 20120928
  Serious: Yes (Death, Hospitalization)
  Sender: FDA-Public Use
  Company Number: FR-ASTRAZENECA-2011SE73947

PATIENT
  Age: 499 Month
  Sex: Male

DRUGS (7)
  1. ASPIRIN [Suspect]
     Indication: CORONARY ANGIOPLASTY
     Route: 048
     Dates: start: 20101201, end: 20110731
  2. ATENOLOL [Suspect]
     Indication: CORONARY ARTERY INSUFFICIENCY
     Route: 048
     Dates: start: 20110112, end: 20110731
  3. OMEPRAZOLE [Suspect]
     Indication: PROPHYLAXIS AGAINST GASTROINTESTINAL ULCER
     Route: 048
     Dates: start: 20101201
  4. PLAVIX [Suspect]
     Indication: CORONARY ANGIOPLASTY
     Route: 048
     Dates: start: 20110112, end: 20110201
  5. PLAVIX [Suspect]
     Route: 048
     Dates: start: 20110201, end: 20110731
  6. PERINDOPRIL ERBUMINE [Suspect]
     Indication: HYPERTENSION
     Route: 048
     Dates: start: 20100128
  7. CRESTOR [Suspect]
     Indication: DYSLIPIDAEMIA
     Route: 048
     Dates: start: 20101201, end: 20110731

REACTIONS (5)
  - ARTERIOGRAM CORONARY ABNORMAL [None]
  - INTRAVENTRICULAR HAEMORRHAGE [None]
  - HAEMORRHAGIC STROKE [None]
  - SUBARACHNOID HAEMORRHAGE [None]
  - ANGINA UNSTABLE [None]
